FAERS Safety Report 9144425 (Version 3)
Quarter: 2013Q2

REPORT INFORMATION
  Report Type: Spontaneous
  Country: AR (occurrence: AR)
  Receive Date: 20130306
  Receipt Date: 20130625
  Transmission Date: 20140414
  Serious: Yes (Other)
  Sender: FDA-Public Use
  Company Number: AR-ROCHE-1198075

PATIENT
  Sex: Female

DRUGS (1)
  1. LUCENTIS [Suspect]
     Indication: MACULOPATHY
     Route: 050
     Dates: start: 2012

REACTIONS (3)
  - Maculopathy [Not Recovered/Not Resolved]
  - Therapeutic response decreased [Unknown]
  - Bone disorder [Not Recovered/Not Resolved]
